FAERS Safety Report 24328624 (Version 1)
Quarter: 2024Q3

REPORT INFORMATION
  Report Type: Other
  Country: TW (occurrence: TW)
  Receive Date: 20240917
  Receipt Date: 20240917
  Transmission Date: 20241016
  Serious: Yes (Life-Threatening)
  Sender: B BRAUN
  Company Number: TW-B.Braun Medical Inc.-2161713

PATIENT
  Age: 3 Year
  Sex: Female
  Weight: 13.6 kg

DRUGS (4)
  1. LIDOCAINE HYDROCHLORIDE [Suspect]
     Active Substance: LIDOCAINE HYDROCHLORIDE
     Indication: Anaesthesia
  2. LIDOCAINE HYDROCHLORIDE [Suspect]
     Active Substance: LIDOCAINE HYDROCHLORIDE
     Indication: Strabismus
  3. PROPOFOL [Suspect]
     Active Substance: PROPOFOL
  4. SEVOFLURANE [Suspect]
     Active Substance: SEVOFLURANE

REACTIONS (1)
  - Hyperthermia malignant [Recovered/Resolved]
